FAERS Safety Report 9199534 (Version 2)
Quarter: 2013Q2

REPORT INFORMATION
  Report Type: Spontaneous
  Country: CH (occurrence: CH)
  Receive Date: 20130329
  Receipt Date: 20130412
  Transmission Date: 20140414
  Serious: Yes (Other)
  Sender: FDA-Public Use
  Company Number: CH-JNJFOC-20130315597

PATIENT
  Age: 45 Year
  Sex: Female
  Weight: 65 kg

DRUGS (6)
  1. REMICADE [Suspect]
     Indication: CROHN^S DISEASE
     Route: 042
     Dates: start: 20120301, end: 20130330
  2. REMICADE [Suspect]
     Indication: CROHN^S DISEASE
     Route: 042
     Dates: start: 201007, end: 201106
  3. REMICADE [Suspect]
     Indication: CROHN^S DISEASE
     Dosage: 3 VIALS
     Route: 042
     Dates: start: 2009
  4. AZATHIOPRINE [Concomitant]
     Dosage: STARTED ON 11-JAN (YEAR UNSPECIFIED)
     Route: 065
     Dates: end: 20120315
  5. CIPROFLOXACIN [Concomitant]
     Dosage: 3 APPLICATIONS
     Route: 065
  6. METRONIDAZOLE [Concomitant]
     Dosage: 3 APPLICATIONS
     Route: 065

REACTIONS (1)
  - Diffuse large B-cell lymphoma [Not Recovered/Not Resolved]
